FAERS Safety Report 5525630-5 (Version None)
Quarter: 2007Q4

REPORT INFORMATION
  Report Type: 
  Country: None (occurrence: None)
  Receive Date: 20071126
  Receipt Date: 20071113
  Transmission Date: 20080405
  Serious: Yes (Death)
  Sender: FDA-Public Use
  Company Number: US-AMGEN-US233879

PATIENT
  Sex: Male

DRUGS (7)
  1. PROCRIT [Suspect]
     Indication: ANAEMIA
     Dates: start: 20070711
  2. CARDIZEM [Concomitant]
     Route: 048
  3. PROPECIA [Concomitant]
  4. SPIRIVA [Concomitant]
     Route: 055
  5. ASPIRIN [Concomitant]
  6. DULCOLAX [Concomitant]
  7. VESICARE [Concomitant]

REACTIONS (4)
  - ASTHENIA [None]
  - DEATH [None]
  - FEELING ABNORMAL [None]
  - HEART RATE DECREASED [None]
